FAERS Safety Report 8323055-0 (Version None)
Quarter: 2012Q2

REPORT INFORMATION
  Report Type: 
  Country: None (occurrence: None)
  Receive Date: 20120430
  Receipt Date: 20120427
  Transmission Date: 20120825
  Serious: Yes (Other)
  Sender: FDA-Public Use
  Company Number: US-ABBOTT-12P-163-0929923-00

PATIENT
  Age: 37 Year
  Sex: Female

DRUGS (3)
  1. TRUVADA [Suspect]
     Indication: ANTIRETROVIRAL THERAPY
     Route: 048
  2. NORVIR [Suspect]
     Indication: ANTIRETROVIRAL THERAPY
     Route: 048
  3. REYATAZ [Suspect]
     Indication: ANTIRETROVIRAL THERAPY
     Route: 048

REACTIONS (3)
  - ABORTION INDUCED [None]
  - PREGNANCY [None]
  - MATERNAL EXPOSURE DURING PREGNANCY [None]
